FAERS Safety Report 7529164-8 (Version None)
Quarter: 2011Q2

REPORT INFORMATION
  Report Type: 
  Country: None (occurrence: None)
  Receive Date: 20110607
  Receipt Date: 20050328
  Transmission Date: 20111010
  Serious: Yes (Death)
  Sender: FDA-Public Use
  Company Number: PHEH2005US03641

PATIENT
  Sex: Female

DRUGS (12)
  1. ACTOS [Concomitant]
     Dosage: 15 MG, QD
  2. CLOZARIL [Suspect]
     Dosage: 100 MG, QD
     Route: 048
  3. ZANTAC [Concomitant]
     Dosage: 300 MG, QD
  4. FOLIC ACID [Concomitant]
     Dosage: 1 MG, QD
  5. SODIUM POLYSTYRENE SULFONATE [Concomitant]
     Indication: BLOOD POTASSIUM INCREASED
     Dosage: 15 GM, ONCE
  6. ZETIA [Concomitant]
     Dosage: 10 MG, QD
  7. ATIVAN [Concomitant]
     Dosage: 1 MG, PRN
  8. PRAVACHOL [Concomitant]
     Dosage: 40 MG, QD
  9. CYTRA-K [Concomitant]
  10. AMILORIDE HYDROCHLORIDE [Concomitant]
     Dosage: 5 MG, QD
  11. XANAX [Concomitant]
     Dosage: 0.5 MG, QD
  12. ANTIVERT [Concomitant]

REACTIONS (1)
  - DEATH [None]
